FAERS Safety Report 5254208-6 (Version None)
Quarter: 2007Q1

REPORT INFORMATION
  Report Type: 
  Country: None (occurrence: None)
  Receive Date: 20070302
  Receipt Date: 20070220
  Transmission Date: 20070707
  Serious: Yes (Other)
  Sender: FDA-Public Use
  Company Number: GB-GLAXOSMITHKLINE-B0460405A

PATIENT
  Sex: Male

DRUGS (1)
  1. NIQUITIN CQ 4MG LOZENGE [Suspect]
     Route: 002

REACTIONS (4)
  - AGGRESSION [None]
  - HICCUPS [None]
  - PERSONALITY CHANGE [None]
  - PHYSICAL ABUSE [None]
